FAERS Safety Report 7669967-2 (Version None)
Quarter: 2011Q3

REPORT INFORMATION
  Report Type: 
  Country: None (occurrence: None)
  Receive Date: 20110808
  Receipt Date: 20110804
  Transmission Date: 20111222
  Serious: Yes (Death)
  Sender: FDA-Public Use
  Company Number: PHHY2011GB70759

PATIENT
  Sex: Female

DRUGS (3)
  1. CARBAMAZEPINE [Concomitant]
  2. VALPROATE SODIUM [Suspect]
     Indication: EPILEPSY
  3. VIGABATRIN [Concomitant]

REACTIONS (2)
  - PANCREATITIS [None]
  - RENAL FAILURE [None]
